FAERS Safety Report 7576265-4 (Version None)
Quarter: 2011Q2

REPORT INFORMATION
  Report Type: 
  Country: None (occurrence: None)
  Receive Date: 20110628
  Receipt Date: 20110603
  Transmission Date: 20111010
  Serious: Yes (Hospitalization, Other)
  Sender: FDA-Public Use
  Company Number: US-BAYER-201035872NA

PATIENT
  Age: 17 Year
  Sex: Female
  Weight: 56.236 kg

DRUGS (4)
  1. AMPICILLIN SODIUM [Concomitant]
  2. YASMIN [Suspect]
     Indication: POLYCYSTIC OVARIES
     Route: 048
     Dates: start: 20020501, end: 20100401
  3. ZANTAC [Concomitant]
  4. DARVOCET [Concomitant]

REACTIONS (6)
  - CHOLECYSTITIS [None]
  - PAIN [None]
  - GALLBLADDER DISORDER [None]
  - DYSPNOEA [None]
  - HEART RATE INCREASED [None]
  - CHOLELITHIASIS [None]
